FAERS Safety Report 12859136 (Version 1)
Quarter: 2016Q4

REPORT INFORMATION
  Report Type: Spontaneous
  Country: US (occurrence: US)
  Receive Date: 20161018
  Receipt Date: 20161018
  Transmission Date: 20170207
  Serious: No
  Sender: FDA-Public Use
  Company Number: US-NOVOPROD-505200

PATIENT
  Age: 67 Year
  Sex: Female

DRUGS (6)
  1. TRESIBA FLEXTOUCH U200 [Suspect]
     Active Substance: INSULIN DEGLUDEC
     Indication: DIABETES MELLITUS
     Dosage: 64 UNITS
     Route: 058
     Dates: start: 201607, end: 201607
  2. NOVOLOG [Suspect]
     Active Substance: INSULIN ASPART
     Indication: DIABETES MELLITUS
     Dosage: 5-10 UNITS
     Route: 058
  3. TRESIBA FLEXTOUCH U200 [Suspect]
     Active Substance: INSULIN DEGLUDEC
     Dosage: 58 UNK, UNK
     Route: 058
     Dates: start: 201607, end: 201607
  4. TRESIBA FLEXTOUCH U200 [Suspect]
     Active Substance: INSULIN DEGLUDEC
     Dosage: 45 U, QD
     Route: 058
     Dates: start: 20160719
  5. TRESIBA FLEXTOUCH U200 [Suspect]
     Active Substance: INSULIN DEGLUDEC
     Dosage: 55 UNK, UNK
     Route: 058
     Dates: start: 201607, end: 201607
  6. TRESIBA FLEXTOUCH U200 [Suspect]
     Active Substance: INSULIN DEGLUDEC
     Dosage: 50 UNK, UNK
     Route: 058
     Dates: start: 20160718, end: 20160718

REACTIONS (4)
  - Drug dose omission [Unknown]
  - Blood glucose decreased [Not Recovered/Not Resolved]
  - Drug prescribing error [Recovered/Resolved]
  - Blood glucose increased [Recovered/Resolved]

NARRATIVE: CASE EVENT DATE: 201607
